FAERS Safety Report 8107651-1 (Version None)
Quarter: 2012Q1

REPORT INFORMATION
  Report Type: 
  Country: None (occurrence: None)
  Receive Date: 20120202
  Receipt Date: 20120127
  Transmission Date: 20120608
  Serious: Yes (Hospitalization)
  Sender: FDA-Public Use
  Company Number: US-SANOFI-AVENTIS-2012SA006163

PATIENT
  Age: 36 Year
  Sex: Female
  Weight: 118 kg

DRUGS (4)
  1. DOCETAXEL [Suspect]
     Dosage: EVERY 21 DAYS
     Route: 041
     Dates: start: 20111014, end: 20111014
  2. DOCETAXEL [Suspect]
     Dosage: EVERY 21 DAYS
     Route: 041
     Dates: start: 20120106, end: 20120106
  3. BLINDED THERAPY [Suspect]
     Dosage: EVERY 21 DAYS
     Route: 042
     Dates: start: 20111014, end: 20111014
  4. BLINDED THERAPY [Suspect]
     Dosage: EVERY 21 DAYS
     Route: 042
     Dates: start: 20120106, end: 20120106

REACTIONS (3)
  - HYPOKALAEMIA [None]
  - PAIN IN JAW [None]
  - HYPOMAGNESAEMIA [None]
